FAERS Safety Report 21061847 (Version 1)
Quarter: 2022Q3

REPORT INFORMATION
  Report Type: Spontaneous
  Country: GB (occurrence: GB)
  Receive Date: 20220710
  Receipt Date: 20220710
  Transmission Date: 20221027
  Serious: Yes (Hospitalization, Other)
  Sender: FDA-Public Use
  Company Number: GB-JNJFOC-20220700958

PATIENT
  Age: 46 Year
  Sex: Female

DRUGS (2)
  1. STELARA [Suspect]
     Active Substance: USTEKINUMAB
     Indication: Crohn^s disease
     Route: 058
     Dates: start: 2021
  2. AZATHIOPRINE [Concomitant]
     Active Substance: AZATHIOPRINE

REACTIONS (5)
  - Uveitis [Unknown]
  - Intestinal obstruction [Unknown]
  - Ulcer [Unknown]
  - Intestinal stenosis [Not Recovered/Not Resolved]
  - Sedation [Unknown]

NARRATIVE: CASE EVENT DATE: 20220101
